FAERS Safety Report 20579676 (Version 5)
Quarter: 2024Q4

REPORT INFORMATION
  Report Type: Report from Study
  Country: IN (occurrence: IN)
  Receive Date: 20220310
  Receipt Date: 20241230
  Transmission Date: 20250114
  Serious: Yes (Other)
  Sender: INCYTE
  Company Number: IN-002147023-NVSC2020IN223176

PATIENT

DRUGS (11)
  1. RUXOLITINIB [Suspect]
     Active Substance: RUXOLITINIB
     Indication: Primary myelofibrosis
     Dosage: 5 MG, BID
     Route: 048
     Dates: start: 20171124
  2. RUXOLITINIB [Suspect]
     Active Substance: RUXOLITINIB
     Dosage: 25 MG, (15 MG IN MORNING AND 10 MG IN EVENING)
     Route: 048
     Dates: start: 20200807
  3. RUXOLITINIB [Suspect]
     Active Substance: RUXOLITINIB
     Dosage: 25 MG, BID
     Route: 048
     Dates: start: 20200819, end: 20210205
  4. RUXOLITINIB [Suspect]
     Active Substance: RUXOLITINIB
     Dosage: 5 MG, BID
     Route: 048
     Dates: start: 20210205, end: 20210427
  5. RUXOLITINIB [Suspect]
     Active Substance: RUXOLITINIB
     Dosage: 5 MG, BID
     Route: 048
     Dates: start: 20210807, end: 20210929
  6. RUXOLITINIB [Suspect]
     Active Substance: RUXOLITINIB
     Dosage: 25 MG (10 MG IN MORNING AND 5 MG IN EVENING
     Route: 048
     Dates: start: 20211108
  7. RUXOLITINIB [Suspect]
     Active Substance: RUXOLITINIB
     Dosage: 10 MG, BID
     Route: 065
     Dates: start: 20211117, end: 202211
  8. RUXOLITINIB [Suspect]
     Active Substance: RUXOLITINIB
     Dosage: 5 MG, BID
     Route: 065
     Dates: end: 20220219
  9. RUXOLITINIB [Suspect]
     Active Substance: RUXOLITINIB
     Dosage: UNK UNK, OTHER (15 MG IN MORNINIG AND 10 MG IN EVENING)
     Route: 065
     Dates: start: 20230206
  10. RUXOLITINIB [Suspect]
     Active Substance: RUXOLITINIB
     Dosage: 15 MG (10 MG IN MORNING AND 5 MG IN EVENING)
     Route: 048
     Dates: start: 20230616
  11. RUXOLITINIB [Suspect]
     Active Substance: RUXOLITINIB
     Dosage: 15 MG (10 MG IN THE MORNING AND 5 MG IN THE EVENING)
     Route: 048

REACTIONS (9)
  - Pyrexia [Recovered/Resolved]
  - Hepatic infection [Unknown]
  - Haemoglobin decreased [Unknown]
  - Platelet count decreased [Unknown]
  - Product use issue [Unknown]
  - Drug tolerance decreased [Unknown]
  - Splenomegaly [Unknown]
  - Tuberculosis [Recovered/Resolved]
  - Vomiting [Unknown]

NARRATIVE: CASE EVENT DATE: 20200806
